FAERS Safety Report 17879694 (Version 1)
Quarter: 2020Q2

REPORT INFORMATION
  Report Type: Spontaneous
  Country: US (occurrence: US)
  Receive Date: 20200609
  Receipt Date: 20200609
  Transmission Date: 20200714
  Serious: Yes (Life-Threatening, Hospitalization)
  Sender: FDA-Public Use
  Company Number: None

PATIENT
  Age: 57 Year
  Sex: Female
  Weight: 80 kg

DRUGS (1)
  1. BUPIVACAINE. [Suspect]
     Active Substance: BUPIVACAINE
     Indication: SURGERY
     Dosage: ?          OTHER FREQUENCY:DURING PROCEDURE;?

REACTIONS (3)
  - Loss of consciousness [None]
  - Systemic toxicity [None]
  - Seizure [None]

NARRATIVE: CASE EVENT DATE: 20200604
